FAERS Safety Report 23357463 (Version 1)
Quarter: 2024Q1

REPORT INFORMATION
  Report Type: Spontaneous
  Country: CN (occurrence: CN)
  Receive Date: 20240102
  Receipt Date: 20240102
  Transmission Date: 20240410
  Serious: Yes (Life-Threatening, Other)
  Sender: FDA-Public Use
  Company Number: CN-BAYER-2024A000421

PATIENT
  Age: 40 Year
  Sex: Female

DRUGS (4)
  1. ULTRAVIST [Suspect]
     Active Substance: IOPROMIDE
     Indication: Computerised tomogram heart
     Dosage: 100 ML, ONCE
     Route: 041
     Dates: start: 20231214, end: 20231214
  2. ULTRAVIST [Suspect]
     Active Substance: IOPROMIDE
     Indication: Chest pain
  3. ULTRAVIST [Suspect]
     Active Substance: IOPROMIDE
     Indication: Coronary artery disease
  4. CHLORIDE SODIUM [Concomitant]
     Dosage: 100 ML, ONCE
     Route: 041
     Dates: start: 20231214, end: 20231214

REACTIONS (12)
  - Anaphylactic shock [Recovering/Resolving]
  - Dizziness [None]
  - Palpitations [None]
  - Hyperhidrosis [None]
  - Cold sweat [Recovering/Resolving]
  - Oxygen saturation decreased [Recovered/Resolved]
  - Blood pressure decreased [Recovering/Resolving]
  - Vomiting [None]
  - Chest discomfort [None]
  - Mental disorder [Recovering/Resolving]
  - Flushing [Recovering/Resolving]
  - Incorrect drug administration rate [None]

NARRATIVE: CASE EVENT DATE: 20231214
